FAERS Safety Report 23833283 (Version 2)
Quarter: 2024Q2

REPORT INFORMATION
  Report Type: Spontaneous
  Country: HU (occurrence: None)
  Receive Date: 20240508
  Receipt Date: 20240611
  Transmission Date: 20240716
  Serious: Yes (Other)
  Sender: FDA-Public Use
  Company Number: 2024A105446

PATIENT
  Age: 23550 Day
  Sex: Female
  Weight: 63 kg

DRUGS (2)
  1. LYNPARZA [Suspect]
     Active Substance: OLAPARIB
     Indication: Ovarian cancer
     Route: 048
     Dates: start: 20240125
  2. VITAMIN D [Concomitant]
     Active Substance: VITAMIN D NOS
     Indication: Hypovitaminosis
     Dosage: 3000 IU

REACTIONS (7)
  - Dyspepsia [Unknown]
  - Anaemia [Recovered/Resolved]
  - Vitamin B12 deficiency [Unknown]
  - Nausea [Recovered/Resolved]
  - Folate deficiency [Unknown]
  - Asphyxia [Recovered/Resolved]
  - Abdominal pain upper [Recovered/Resolved]

NARRATIVE: CASE EVENT DATE: 20240319
